FAERS Safety Report 10219250 (Version 1)
Quarter: 2014Q2

REPORT INFORMATION
  Report Type: Spontaneous
  Country: US (occurrence: None)
  Receive Date: 20140604
  Receipt Date: 20140604
  Transmission Date: 20141212
  Serious: Yes (Other)
  Sender: FDA-Public Use
  Company Number: None

PATIENT
  Age: 48 Year
  Sex: Female

DRUGS (4)
  1. PEGASYS PROCLICK [Suspect]
     Indication: CHRONIC HEPATITIS C
     Route: 058
     Dates: start: 20140505
  2. PEGASYS PROCLICK [Suspect]
     Indication: CHRONIC HEPATITIS C
     Route: 058
     Dates: start: 20140505
  3. RIBAVIRIN [Concomitant]
  4. SOVALDI [Concomitant]

REACTIONS (5)
  - Hypoaesthesia [None]
  - Rash macular [None]
  - Rash erythematous [None]
  - Flushing [None]
  - Skin discolouration [None]
